FAERS Safety Report 6356069-0 (Version None)
Quarter: 2009Q3

REPORT INFORMATION
  Report Type: 
  Country: None (occurrence: None)
  Receive Date: 20090911
  Receipt Date: 20090911
  Transmission Date: 20100115
  Serious: Yes (Other)
  Sender: FDA-Public Use
  Company Number: None

PATIENT
  Age: 93 Year
  Sex: Female
  Weight: 54.4316 kg

DRUGS (1)
  1. CARAC [Suspect]
     Indication: SKIN CANCER
     Dosage: APPLY CREAM 1X DAY

REACTIONS (3)
  - DIZZINESS [None]
  - GAIT DISTURBANCE [None]
  - NAUSEA [None]
